FAERS Safety Report 6615262-X (Version None)
Quarter: 2010Q1

REPORT INFORMATION
  Report Type: 
  Country: None (occurrence: None)
  Receive Date: 20100305
  Receipt Date: 20100224
  Transmission Date: 20100710
  Serious: Yes (Other)
  Sender: FDA-Public Use
  Company Number: US-MYLANLABS-2010S1003074

PATIENT
  Age: 65 Year
  Sex: Female

DRUGS (14)
  1. FENTANYL CITRATE [Suspect]
     Indication: ARTHRITIS
     Dosage: Q3D
     Route: 062
     Dates: start: 20100219, end: 20100223
  2. GLYBURIDE [Concomitant]
     Indication: DIABETES MELLITUS
     Route: 048
  3. LANTUS [Concomitant]
     Indication: DIABETES MELLITUS
     Route: 058
  4. NYSTATIN [Concomitant]
     Indication: RASH
     Route: 061
  5. OMEPRAZOLE [Concomitant]
     Route: 048
  6. VITAMIN B-12 [Concomitant]
     Route: 030
  7. AMIODARON /00133101/ [Concomitant]
     Route: 048
  8. COUMADIN [Concomitant]
     Route: 048
  9. BYSTOLIC [Concomitant]
     Route: 048
  10. ALBUTEROL [Concomitant]
     Route: 055
  11. OXYGEN [Concomitant]
     Route: 045
  12. LASIX [Concomitant]
     Route: 048
  13. HYDROXYCHLOROQUINE SULFATE [Concomitant]
     Route: 048
  14. KLOR-CON [Concomitant]
     Route: 048

REACTIONS (7)
  - CONFUSIONAL STATE [None]
  - DIZZINESS [None]
  - DYSARTHRIA [None]
  - NEUROLOGICAL SYMPTOM [None]
  - PALLOR [None]
  - PARAESTHESIA [None]
  - VISION BLURRED [None]
